FAERS Safety Report 4686688-9 (Version None)
Quarter: 2005Q2

REPORT INFORMATION
  Report Type: 
  Country: None (occurrence: None)
  Receive Date: 20050606
  Receipt Date: 20050520
  Transmission Date: 20051028
  Serious: Yes (Congenital Anomaly)
  Sender: FDA-Public Use
  Company Number: GBS050517465

PATIENT
  Sex: Male
  Weight: 2 kg

DRUGS (1)
  1. OLANZAPINE [Suspect]
     Dates: start: 20040210, end: 20040323

REACTIONS (3)
  - DRUG EXPOSURE DURING PREGNANCY [None]
  - PREMATURE BABY [None]
  - TRISOMY 21 [None]
